FAERS Safety Report 6519313-2 (Version None)
Quarter: 2009Q4

REPORT INFORMATION
  Report Type: 
  Country: None (occurrence: None)
  Receive Date: 20091224
  Receipt Date: 20091224
  Transmission Date: 20100525
  Serious: Yes (Hospitalization)
  Sender: FDA-Public Use
  Company Number: None

PATIENT
  Sex: Female
  Weight: 4.0824 kg

DRUGS (3)
  1. SYNAGIS [Suspect]
     Indication: ANTIVIRAL PROPHYLAXIS
     Dosage: 15MG/KG Q MO. IM
     Route: 030
     Dates: start: 20091001
  2. SYNAGIS [Suspect]
     Indication: ANTIVIRAL PROPHYLAXIS
     Dosage: 15MG/KG Q MO. IM
     Route: 030
     Dates: start: 20091106
  3. SYNAGIS [Suspect]
     Indication: ANTIVIRAL PROPHYLAXIS
     Dosage: 15MG/KG Q MO. IM
     Route: 030
     Dates: start: 20091208

REACTIONS (3)
  - BRONCHITIS [None]
  - GASTROENTERITIS VIRAL [None]
  - MENINGITIS VIRAL [None]
